FAERS Safety Report 6403250-8 (Version None)
Quarter: 2009Q4

REPORT INFORMATION
  Report Type: 
  Country: None (occurrence: None)
  Receive Date: 20091016
  Receipt Date: 20091005
  Transmission Date: 20100525
  Serious: Yes (Other)
  Sender: FDA-Public Use
  Company Number: US-PFIZER INC-2009281730

PATIENT
  Sex: Male

DRUGS (2)
  1. GEODON [Suspect]
     Indication: AUTISM
  2. PROZAC [Concomitant]
     Dosage: 30 MG, UNK

REACTIONS (2)
  - DRUG ADMINISTRATION ERROR [None]
  - OESOPHAGEAL CARCINOMA [None]
